FAERS Safety Report 15562573 (Version 2)
Quarter: 2020Q3

REPORT INFORMATION
  Report Type: Report from Study
  Country: CN (occurrence: CN)
  Receive Date: 20181029
  Receipt Date: 20190507
  Transmission Date: 20201104
  Serious: Yes (Death, Hospitalization)
  Sender: FDA-Public Use
  Company Number: CN-ASTRAZENECA-2018SF16210

PATIENT
  Age: 24955 Day
  Sex: Male

DRUGS (21)
  1. CARBOPLATIN. [Suspect]
     Active Substance: CARBOPLATIN
     Indication: SMALL CELL LUNG CANCER
     Dosage: 5 AUC
     Route: 065
     Dates: start: 20180823, end: 20180823
  2. DURVALUMAB. [Suspect]
     Active Substance: DURVALUMAB
     Indication: SMALL CELL LUNG CANCER
     Route: 042
     Dates: start: 20180801, end: 20180801
  3. CARBOPLATIN. [Suspect]
     Active Substance: CARBOPLATIN
     Indication: SMALL CELL LUNG CANCER
     Dosage: 5 AUC
     Route: 065
     Dates: start: 20180801, end: 20180801
  4. ETOPOSIDE. [Suspect]
     Active Substance: ETOPOSIDE
     Indication: SMALL CELL LUNG CANCER
     Dosage: 80 MG/M2
     Route: 065
     Dates: start: 20180713, end: 20180713
  5. NIFEDIPINE. [Concomitant]
     Active Substance: NIFEDIPINE
     Indication: HYPERTENSION
     Route: 048
     Dates: start: 201701
  6. CALCIUM CARBONATE AND VITAMIN D [Concomitant]
     Active Substance: CALCIUM CARBONATE\VITAMIN D
     Indication: MUSCLE SPASMS
     Route: 048
     Dates: start: 201405
  7. TREMELIMUMAB. [Suspect]
     Active Substance: TREMELIMUMAB
     Indication: SMALL CELL LUNG CANCER
     Route: 042
     Dates: start: 20180711, end: 20180711
  8. TREMELIMUMAB. [Suspect]
     Active Substance: TREMELIMUMAB
     Indication: SMALL CELL LUNG CANCER
     Route: 042
     Dates: start: 20180801, end: 20180801
  9. ASPIRIN. [Concomitant]
     Active Substance: ASPIRIN
     Indication: ANTICOAGULANT THERAPY
     Route: 048
     Dates: start: 201710
  10. ETOPOSIDE. [Suspect]
     Active Substance: ETOPOSIDE
     Indication: SMALL CELL LUNG CANCER
     Dosage: 80 MG/M2
     Route: 065
     Dates: start: 20180711, end: 20180712
  11. ETOPOSIDE. [Suspect]
     Active Substance: ETOPOSIDE
     Indication: SMALL CELL LUNG CANCER
     Dosage: 80 MG/M2
     Route: 065
     Dates: start: 20180712, end: 20180712
  12. ETOPOSIDE. [Suspect]
     Active Substance: ETOPOSIDE
     Indication: SMALL CELL LUNG CANCER
     Dosage: 80 MG/M2
     Route: 065
     Dates: start: 20180801, end: 20180801
  13. TREMELIMUMAB. [Suspect]
     Active Substance: TREMELIMUMAB
     Indication: SMALL CELL LUNG CANCER
     Route: 042
     Dates: start: 20180823, end: 20180823
  14. CARBOPLATIN. [Suspect]
     Active Substance: CARBOPLATIN
     Indication: SMALL CELL LUNG CANCER
     Dosage: 5 AUC
     Route: 065
     Dates: start: 20180711, end: 20180711
  15. ETOPOSIDE. [Suspect]
     Active Substance: ETOPOSIDE
     Indication: SMALL CELL LUNG CANCER
     Dosage: 80 MG/M2
     Route: 065
     Dates: start: 20180802, end: 20180802
  16. ETOPOSIDE. [Suspect]
     Active Substance: ETOPOSIDE
     Indication: SMALL CELL LUNG CANCER
     Dosage: 80 MG/M2
     Route: 065
     Dates: start: 20180803, end: 20180803
  17. DURVALUMAB. [Suspect]
     Active Substance: DURVALUMAB
     Indication: SMALL CELL LUNG CANCER
     Route: 042
     Dates: start: 20180711, end: 20180711
  18. DURVALUMAB. [Suspect]
     Active Substance: DURVALUMAB
     Indication: SMALL CELL LUNG CANCER
     Route: 042
     Dates: start: 20180823, end: 20180823
  19. ETOPOSIDE. [Suspect]
     Active Substance: ETOPOSIDE
     Indication: SMALL CELL LUNG CANCER
     Dosage: 80 MG/M2
     Route: 065
     Dates: start: 20180823, end: 20180823
  20. ETOPOSIDE. [Suspect]
     Active Substance: ETOPOSIDE
     Indication: SMALL CELL LUNG CANCER
     Dosage: 80 MG/M2
     Route: 065
     Dates: start: 20180824, end: 20180824
  21. ETOPOSIDE. [Suspect]
     Active Substance: ETOPOSIDE
     Indication: SMALL CELL LUNG CANCER
     Dosage: 80 MG/M2
     Route: 065
     Dates: start: 20180825, end: 20180825

REACTIONS (1)
  - Pneumonia [Fatal]

NARRATIVE: CASE EVENT DATE: 20180909
